FAERS Safety Report 4429235-9 (Version None)
Quarter: 2004Q3

REPORT INFORMATION
  Report Type: 
  Country: None (occurrence: None)
  Receive Date: 20040817
  Receipt Date: 20040817
  Transmission Date: 20050211
  Serious: Yes (Hospitalization)
  Sender: FDA-Public Use
  Company Number: None

PATIENT
  Age: 4 Year
  Sex: Male
  Weight: 23.8 kg

DRUGS (7)
  1. DECADRON [Suspect]
     Indication: ACUTE LYMPHOCYTIC LEUKAEMIA
     Dosage: 6 MG/M2 /DAY BID X 28 DA ORAL
     Route: 048
     Dates: start: 20040709, end: 20040804
  2. VINCRISTINE [Concomitant]
  3. IT ARAC [Concomitant]
  4. METHOTREXATE [Concomitant]
  5. ONCASPAR [Concomitant]
  6. INSULIN [Concomitant]
  7. RITALIN [Concomitant]

REACTIONS (3)
  - COMA [None]
  - HYPERTENSIVE ENCEPHALOPATHY [None]
  - LOSS OF CONSCIOUSNESS [None]
